FAERS Safety Report 10753895 (Version 2)
Quarter: 2015Q1

REPORT INFORMATION
  Report Type: Spontaneous
  Country: JP (occurrence: None)
  Receive Date: 20150129
  Receipt Date: 20150212
  Transmission Date: 20150721
  Serious: Yes (Hospitalization, Other)
  Sender: FDA-Public Use
  Company Number: JP2015JPN008882

PATIENT
  Age: 60 Year
  Sex: Male

DRUGS (4)
  1. ZIAGEN [Suspect]
     Active Substance: ABACAVIR SULFATE
     Indication: HIV INFECTION
     Route: 048
  2. LEXIVA [Suspect]
     Active Substance: FOSAMPRENAVIR CALCIUM
     Indication: HIV INFECTION
     Route: 048
  3. NORVIR [Concomitant]
     Active Substance: RITONAVIR
  4. STOCRIN (EFAVIRENZ) [Concomitant]

REACTIONS (1)
  - Cerebral haemorrhage [None]

NARRATIVE: CASE EVENT DATE: 20150122
